FAERS Safety Report 4562368-5 (Version None)
Quarter: 2005Q1

REPORT INFORMATION
  Report Type: 
  Country: None (occurrence: None)
  Receive Date: 20050127
  Receipt Date: 20050119
  Transmission Date: 20050727
  Serious: Yes (Hospitalization, Other)
  Sender: FDA-Public Use
  Company Number: 200510280FR

PATIENT
  Age: 49 Year
  Sex: Female

DRUGS (8)
  1. HYDROCORTISONE [Suspect]
     Indication: ADRENAL INSUFFICIENCY
     Route: 048
     Dates: start: 20041201
  2. CORTANCYL [Concomitant]
     Indication: SYSTEMIC LUPUS ERYTHEMATOSUS
     Route: 048
     Dates: start: 19990101
  3. MAXEPA                                  /UNK/ [Concomitant]
  4. ZYRTEC [Concomitant]
  5. TAHOR [Concomitant]
  6. CLARADOL CAFFEINE [Concomitant]
  7. FOSAMAX [Concomitant]
  8. MODURETIC 5-50 [Concomitant]

REACTIONS (2)
  - DYSPNOEA [None]
  - PULMONARY EMBOLISM [None]
